FAERS Safety Report 14270867 (Version 1)
Quarter: 2017Q4

REPORT INFORMATION
  Report Type: Report from Study
  Country: TW (occurrence: TW)
  Receive Date: 20171211
  Receipt Date: 20171211
  Transmission Date: 20180321
  Serious: Yes (Hospitalization)
  Sender: FDA-Public Use
  Company Number: TW-OTSUKA-001647

PATIENT
  Age: 32 Year
  Sex: Male

DRUGS (20)
  1. FLUDIAZEPAM [Concomitant]
     Active Substance: FLUDIAZEPAM
     Dosage: 0.25 MG, BID
     Route: 048
     Dates: start: 20080623
  2. SENNOSIDE [Concomitant]
     Active Substance: SENNOSIDES
     Indication: CONSTIPATION
     Dosage: 12 MG, SINGLE
     Route: 048
     Dates: start: 20080625, end: 20080627
  3. ARIPIPRAZOLE. [Suspect]
     Active Substance: ARIPIPRAZOLE
     Dosage: 30 MG, QD
     Route: 048
     Dates: start: 20080616
  4. ARIPIPRAZOLE. [Suspect]
     Active Substance: ARIPIPRAZOLE
     Dosage: 20 MG, QD
     Route: 048
     Dates: start: 20071216, end: 20080212
  5. DICLOFENAC [Concomitant]
     Active Substance: DICLOFENAC
     Indication: HEADACHE
     Dosage: 25 MG, QD
     Route: 048
     Dates: start: 20080712
  6. ARIPIPRAZOLE. [Suspect]
     Active Substance: ARIPIPRAZOLE
     Indication: SCHIZOPHRENIA
     Dosage: 15 MG, QD
     Route: 048
     Dates: start: 20070816, end: 20071022
  7. ARIPIPRAZOLE. [Suspect]
     Active Substance: ARIPIPRAZOLE
     Dosage: 30 MG, QD
     Route: 048
     Dates: start: 20071204, end: 20071215
  8. LORAZEPAM. [Concomitant]
     Active Substance: LORAZEPAM
     Dosage: 4 MG, SINGLE
     Route: 048
     Dates: start: 20080720, end: 20080722
  9. PROPANOL [Concomitant]
     Active Substance: PROPRANOLOL HYDROCHLORIDE
     Dosage: FORM TABLET.
     Dates: start: 20080312
  10. ARIPIPRAZOLE. [Suspect]
     Active Substance: ARIPIPRAZOLE
     Dosage: 20 MG, QD
     Route: 048
     Dates: start: 20080326, end: 20080615
  11. TRIHEXYPHENIDYL [Concomitant]
     Active Substance: TRIHEXYPHENIDYL
     Indication: EXTRAPYRAMIDAL DISORDER
     Dosage: 2 MG, BID
     Route: 048
     Dates: start: 20080102
  12. LORAZEPAM. [Concomitant]
     Active Substance: LORAZEPAM
     Indication: INSOMNIA
     Dosage: 4 MG, SINGLE
     Route: 048
     Dates: start: 20080423, end: 20080623
  13. ESTAZOLAM. [Concomitant]
     Active Substance: ESTAZOLAM
     Indication: INSOMNIA
     Dosage: 4 MG, SINGLE
     Route: 048
     Dates: start: 20080722
  14. ARIPIPRAZOLE. [Suspect]
     Active Substance: ARIPIPRAZOLE
     Dosage: 20 MG, QD
     Route: 048
     Dates: start: 20071023, end: 20071203
  15. FLUDIAZEPAM [Concomitant]
     Active Substance: FLUDIAZEPAM
     Indication: ANXIETY
     Dosage: 0.25 MG, BID
     Route: 048
     Dates: start: 20070516, end: 20080721
  16. LORAZEPAM. [Concomitant]
     Active Substance: LORAZEPAM
     Dosage: FORM TABLET.
     Dates: start: 20080423, end: 20080722
  17. ARIPIPRAZOLE. [Suspect]
     Active Substance: ARIPIPRAZOLE
     Dosage: 30 MG, QD
     Route: 048
     Dates: start: 20080213, end: 20080325
  18. MAGNESIUM OXIDE. [Concomitant]
     Active Substance: MAGNESIUM OXIDE
     Indication: CONSTIPATION
     Dosage: 250 MG, BID
     Route: 048
     Dates: start: 20070402, end: 20080711
  19. PROPRANOLOL [Concomitant]
     Active Substance: PROPRANOLOL HYDROCHLORIDE
     Indication: TREMOR
     Dosage: 10 MG, BID
     Route: 048
     Dates: start: 20080312
  20. ZOLPIDEM [Concomitant]
     Active Substance: ZOLPIDEM\ZOLPIDEM TARTRATE
     Indication: INSOMNIA
     Dosage: 10 MG, SINGLE
     Route: 048
     Dates: start: 20080722, end: 20080723

REACTIONS (2)
  - Persecutory delusion [Recovering/Resolving]
  - Hallucination, auditory [Recovering/Resolving]

NARRATIVE: CASE EVENT DATE: 20080623
